FAERS Safety Report 17780207 (Version 1)
Quarter: 2020Q2

REPORT INFORMATION
  Report Type: Spontaneous
  Country: US (occurrence: US)
  Receive Date: 20200513
  Receipt Date: 20200513
  Transmission Date: 20200714
  Serious: Yes (Hospitalization, Other)
  Sender: FDA-Public Use
  Company Number: US-NOVOPROD-727602

PATIENT
  Sex: Male

DRUGS (1)
  1. NOVOLOG MIX 70/30 [Suspect]
     Active Substance: INSULIN ASPART
     Indication: TYPE 2 DIABETES MELLITUS
     Dosage: 46 AND 48 UNITS DAILY
     Route: 058

REACTIONS (4)
  - Intentional product misuse [Unknown]
  - Dizziness [Unknown]
  - Cardiac disorder [Unknown]
  - Blood glucose increased [Unknown]
